FAERS Safety Report 15147689 (Version 1)
Quarter: 2018Q3

REPORT INFORMATION
  Report Type: Spontaneous
  Country: US (occurrence: US)
  Receive Date: 20180716
  Receipt Date: 20180716
  Transmission Date: 20181010
  Serious: No
  Sender: FDA-Public Use
  Company Number: US-PFIZER INC-2018285287

PATIENT
  Age: 58 Year
  Sex: Male
  Weight: 87.9 kg

DRUGS (2)
  1. VIAGRA [Interacting]
     Active Substance: SILDENAFIL CITRATE
     Dosage: UNK
     Dates: start: 2018
  2. AMLODIPINE BESILATE [Suspect]
     Active Substance: AMLODIPINE BESYLATE
     Dosage: UNK
     Dates: start: 2011

REACTIONS (1)
  - Drug interaction [Not Recovered/Not Resolved]

NARRATIVE: CASE EVENT DATE: 2018
